FAERS Safety Report 5864578-3 (Version None)
Quarter: 2008Q3

REPORT INFORMATION
  Report Type: 
  Country: None (occurrence: None)
  Receive Date: 20080829
  Receipt Date: 20080716
  Transmission Date: 20090109
  Serious: No
  Sender: FDA-Public Use
  Company Number: US-ABBOTT-08P-163-0463330-00

PATIENT
  Age: 59 Year
  Sex: Female

DRUGS (1)
  1. SIMCOR [Suspect]
     Indication: BLOOD TRIGLYCERIDES INCREASED
     Route: 048
     Dates: start: 20080715, end: 20080715

REACTIONS (4)
  - ERYTHEMA [None]
  - OCULAR HYPERAEMIA [None]
  - PARAESTHESIA [None]
  - VISION BLURRED [None]
